FAERS Safety Report 10994907 (Version 2)
Quarter: 2015Q2

REPORT INFORMATION
  Report Type: Spontaneous
  Country: US (occurrence: US)
  Receive Date: 20150407
  Receipt Date: 20150508
  Transmission Date: 20150821
  Serious: No
  Sender: FDA-Public Use
  Company Number: US-009507513-1504USA001445

PATIENT
  Sex: Male
  Weight: 52 kg

DRUGS (6)
  1. NOXAFIL [Suspect]
     Active Substance: POSACONAZOLE
     Indication: ASPERGILLUS INFECTION
     Dosage: 200 MG, TID
     Route: 048
     Dates: start: 20141106, end: 20141122
  2. MS CONTIN [Concomitant]
     Active Substance: MORPHINE SULFATE
     Dosage: TOTAL DAILY DOSE:30 MG
     Route: 048
  3. BACTRIM [Concomitant]
     Active Substance: SULFAMETHOXAZOLE\TRIMETHOPRIM
     Indication: PROPHYLAXIS
     Route: 048
  4. NOXAFIL [Suspect]
     Active Substance: POSACONAZOLE
     Indication: ASPERGILLUS INFECTION
     Dosage: 400 MG, BID
     Route: 048
     Dates: start: 20141125
  5. CLARITHROMYCIN. [Concomitant]
     Active Substance: CLARITHROMYCIN
     Dosage: TOTAL DAILY DOSE 1 GM
     Route: 048
  6. METHYLPREDNISOLONE. [Concomitant]
     Active Substance: METHYLPREDNISOLONE
     Indication: VASCULITIS
     Dosage: TOTAL DAILY DOSE : 32 MG
     Route: 048

REACTIONS (1)
  - Toxicity to various agents [Recovering/Resolving]
